FAERS Safety Report 6810221-6 (Version None)
Quarter: 2010Q2

REPORT INFORMATION
  Report Type: 
  Country: None (occurrence: None)
  Receive Date: 20100630
  Receipt Date: 20100621
  Transmission Date: 20101027
  Serious: Yes (Other)
  Sender: FDA-Public Use
  Company Number: JP-PFIZER INC-2010076768

PATIENT
  Age: 76 Year
  Sex: Female

DRUGS (2)
  1. XALATAN [Suspect]
     Route: 047
  2. KARY UNI [Concomitant]

REACTIONS (3)
  - ABDOMINAL DISCOMFORT [None]
  - HYPERTENSION [None]
  - NASAL CONGESTION [None]
